FAERS Safety Report 12600995 (Version 2)
Quarter: 2017Q2

REPORT INFORMATION
  Report Type: Report from Study
  Country: US (occurrence: US)
  Receive Date: 20160728
  Receipt Date: 20170508
  Transmission Date: 20170830
  Serious: No
  Sender: FDA-Public Use
  Company Number: US-009507513-1607USA011718

PATIENT
  Sex: Female
  Weight: 112.93 kg

DRUGS (1)
  1. IMPLANON [Suspect]
     Active Substance: ETONOGESTREL
     Dosage: UNK
     Route: 059
     Dates: start: 20150402, end: 20160929

REACTIONS (3)
  - Menstruation irregular [Recovering/Resolving]
  - Medical device removal [Unknown]
  - Menorrhagia [Unknown]
